FAERS Safety Report 23202544 (Version 1)
Quarter: 2023Q4

REPORT INFORMATION
  Report Type: Other
  Country: US (occurrence: None)
  Receive Date: 20231120
  Receipt Date: 20231120
  Transmission Date: 20240110
  Serious: Yes (Other)
  Sender: FDA-Public Use
  Company Number: US-ROCHE-3444528

PATIENT
  Age: 64 Year
  Sex: Female

DRUGS (17)
  1. OCREVUS [Suspect]
     Active Substance: OCRELIZUMAB
     Indication: Relapsing-remitting multiple sclerosis
     Dosage: YES; THEN 600 MG FOR EVERY 6 MONTHS; DATE OF TREATMENT: 02/MAR/2023, 19/AUG/2022, 18/FEB/2022, 17/AU
     Route: 042
     Dates: start: 202106
  2. AMPYRA [Concomitant]
     Active Substance: DALFAMPRIDINE
  3. METHYLPHENIDATE [Concomitant]
     Active Substance: METHYLPHENIDATE
  4. BUPROPION [Concomitant]
     Active Substance: BUPROPION
  5. BACLOFEN [Concomitant]
     Active Substance: BACLOFEN
     Indication: Irritable bowel syndrome
  6. BACLOFEN [Concomitant]
     Active Substance: BACLOFEN
     Indication: Automatic bladder
  7. OXCARBAZEPINE [Concomitant]
     Active Substance: OXCARBAZEPINE
     Indication: Neuropathy peripheral
     Route: 048
  8. OXCARBAZEPINE [Concomitant]
     Active Substance: OXCARBAZEPINE
     Route: 048
  9. OXYBUTYNIN [Concomitant]
     Active Substance: OXYBUTYNIN
  10. ASPIRIN [Concomitant]
     Active Substance: ASPIRIN
  11. PANTOPRAZOLE [Concomitant]
     Active Substance: PANTOPRAZOLE
  12. COPAXONE [Concomitant]
     Active Substance: GLATIRAMER ACETATE
  13. TECFIDERA [Concomitant]
     Active Substance: DIMETHYL FUMARATE
  14. GILENYA [Concomitant]
     Active Substance: FINGOLIMOD HYDROCHLORIDE
  15. REBIF [Concomitant]
     Active Substance: INTERFERON BETA-1A
  16. IBUPROFEN [Concomitant]
     Active Substance: IBUPROFEN
  17. BACLOFEN [Concomitant]
     Active Substance: BACLOFEN

REACTIONS (7)
  - Urinary tract infection [Recovered/Resolved]
  - Sinusitis [Recovered/Resolved]
  - Back injury [Recovered/Resolved]
  - Nasopharyngitis [Recovered/Resolved]
  - Contrast media allergy [Recovered/Resolved]
  - Nausea [Recovered/Resolved]
  - Cystitis [Recovered/Resolved]

NARRATIVE: CASE EVENT DATE: 20231001
